FAERS Safety Report 16706154 (Version 1)
Quarter: 2019Q4

REPORT INFORMATION
  Report Type: Spontaneous
  Country: US (occurrence: US)
  Receive Date: 20190814
  Receipt Date: 20190814
  Transmission Date: 20200122
  Serious: Yes (Other)
  Sender: FDA-Public Use
  Company Number: None

PATIENT
  Age: 54 Year
  Sex: Female
  Weight: 112.05 kg

DRUGS (15)
  1. OXYGEN C PAP [Concomitant]
  2. CARBEDILOL [Concomitant]
  3. CHANTIX [Concomitant]
     Active Substance: VARENICLINE TARTRATE
  4. CINGULAR [Concomitant]
  5. NEBILIZER [Concomitant]
  6. BREO ELLIPTA [Concomitant]
     Active Substance: FLUTICASONE FUROATE\VILANTEROL TRIFENATATE
  7. BIOFREEZE ROLL-ON [Suspect]
     Active Substance: MENTHOL
     Indication: MUSCULOSKELETAL PAIN
     Route: 061
     Dates: start: 20190813, end: 20190813
  8. RANTADINE [Concomitant]
  9. OMEPERZOL [Concomitant]
  10. IBUPROFEN. [Concomitant]
     Active Substance: IBUPROFEN
  11. BENYDRYL [Concomitant]
  12. BIOFREEZE ROLL-ON [Suspect]
     Active Substance: MENTHOL
     Indication: NECK PAIN
     Route: 061
     Dates: start: 20190813, end: 20190813
  13. LORSARTAN [Concomitant]
     Active Substance: LOSARTAN
  14. ASPIRIN. [Concomitant]
     Active Substance: ASPIRIN
  15. LEVOTHYROZIN [Concomitant]

REACTIONS (6)
  - Throat irritation [None]
  - Expired product administered [None]
  - Application site pain [None]
  - Dysphagia [None]
  - Oropharyngeal pain [None]
  - Dyspnoea [None]

NARRATIVE: CASE EVENT DATE: 20190813
